FAERS Safety Report 13554915 (Version 1)
Quarter: 2017Q2

REPORT INFORMATION
  Report Type: Spontaneous
  Country: US (occurrence: US)
  Receive Date: 20170517
  Receipt Date: 20170517
  Transmission Date: 20170830
  Serious: Yes (Other)
  Sender: FDA-Public Use
  Company Number: US-PFIZER INC-2016270632

PATIENT
  Age: 75 Year
  Sex: Female
  Weight: 63.5 kg

DRUGS (18)
  1. LISINOPRIL. [Concomitant]
     Active Substance: LISINOPRIL
     Dosage: 5 MG, DAILY
  2. PRAVASTATIN SODIUM. [Concomitant]
     Active Substance: PRAVASTATIN SODIUM
     Dosage: 4 MG, DAILY
  3. GABAPENTIN. [Concomitant]
     Active Substance: GABAPENTIN
     Indication: PAIN
     Dosage: 1200 MG, UNK
  4. ASPIRIN BAYER [Concomitant]
     Active Substance: ASPIRIN
     Dosage: 1 DF, DAILY (LOW DOSE)
  5. CALCIUM [Concomitant]
     Active Substance: CALCIUM
     Dosage: 1260 MG, 1X/DAY (2 TABS/DAY)
  6. TRIAMCINOLONE ACETONIDE. [Concomitant]
     Active Substance: TRIAMCINOLONE ACETONIDE
     Indication: DYSHIDROTIC ECZEMA
     Dosage: UNK
     Route: 061
     Dates: start: 20151109
  7. LYRICA [Suspect]
     Active Substance: PREGABALIN
     Indication: BACK PAIN
     Dosage: 75 MG, 1X/DAY (1 TAB QHS X7 DAYS)
  8. GABAPENTIN. [Concomitant]
     Active Substance: GABAPENTIN
     Dosage: 600 MG, 3X/DAY
  9. LYRICA [Suspect]
     Active Substance: PREGABALIN
     Dosage: 75 MG, UNK (ONLY TOOK 10 75MG LYRICA)
     Route: 048
     Dates: start: 201606, end: 201606
  10. IPRATROPIUM BROMIDE. [Concomitant]
     Active Substance: IPRATROPIUM BROMIDE
     Indication: CHRONIC OBSTRUCTIVE PULMONARY DISEASE
     Dosage: 0.5 MG, AS NEEDED [ONCE DAILY OR TAKEN AS NEEDED ]
     Route: 055
  11. ADVAIR HFA [Concomitant]
     Active Substance: FLUTICASONE PROPIONATE\SALMETEROL XINAFOATE
     Dosage: 2 DF, DAILY[FLUTICASONE PROPIONATE 500]\ [SALMETEROL XINAFOATE 50]
  12. OXYBUTYNIN CHLORIDE. [Concomitant]
     Active Substance: OXYBUTYNIN CHLORIDE
     Indication: POLLAKIURIA
     Dosage: 10 MG, DAILY
  13. CENTRUM SILVER +50 [Concomitant]
     Dosage: 1 DF, DAILY
  14. ALBUTEROL SULFATE. [Concomitant]
     Active Substance: ALBUTEROL SULFATE
     Dosage: 0.3 MG, UNK
  15. LYRICA [Suspect]
     Active Substance: PREGABALIN
     Indication: NEURALGIA
     Dosage: 75 MG, 2X/DAY
  16. CITRACAL + D [Concomitant]
     Active Substance: CALCIUM CITRATE\VITAMIN D
     Dosage: 2 DF, DAILY [VITAMIN D 500 IU] / [CALCIUM 630 MG]
  17. GABAPENTIN. [Concomitant]
     Active Substance: GABAPENTIN
     Dosage: 300 MG, 3X/DAY
  18. MELOXICAM. [Concomitant]
     Active Substance: MELOXICAM
     Indication: ARTHRITIS
     Dosage: 15 MG, DAILY
     Route: 048

REACTIONS (2)
  - Lung neoplasm malignant [Unknown]
  - Intentional product misuse [Unknown]

NARRATIVE: CASE EVENT DATE: 201606
